FAERS Safety Report 7491235-2 (Version None)
Quarter: 2011Q2

REPORT INFORMATION
  Report Type: 
  Country: None (occurrence: None)
  Receive Date: 20110519
  Receipt Date: 20110511
  Transmission Date: 20111010
  Serious: Yes (Hospitalization)
  Sender: FDA-Public Use
  Company Number: A0794484A

PATIENT
  Age: 43 Year
  Sex: Male
  Weight: 103.2 kg

DRUGS (9)
  1. AMARYL [Concomitant]
  2. LOPID [Concomitant]
  3. PROZAC [Concomitant]
  4. ZESTRIL [Concomitant]
  5. LIPITOR [Concomitant]
  6. METOPROLOL TARTRATE [Concomitant]
  7. INSULIN [Concomitant]
  8. AVANDIA [Suspect]
     Indication: DIABETES MELLITUS
     Dosage: 4MG TWICE PER DAY
     Route: 048
     Dates: start: 20011213, end: 20080916
  9. GLUCOPHAGE [Concomitant]

REACTIONS (4)
  - WEIGHT INCREASED [None]
  - MYOCARDIAL INFARCTION [None]
  - CORONARY ARTERY DISEASE [None]
  - MYOCARDIAL ISCHAEMIA [None]
